FAERS Safety Report 7814625-4 (Version None)
Quarter: 2011Q4

REPORT INFORMATION
  Report Type: 
  Country: None (occurrence: None)
  Receive Date: 20111014
  Receipt Date: 20110930
  Transmission Date: 20120403
  Serious: Yes (Hospitalization)
  Sender: FDA-Public Use
  Company Number: US-BAYER-2011-082341

PATIENT
  Age: 51 Year
  Sex: Female
  Weight: 52.154 kg

DRUGS (6)
  1. TRIAMTERENE AND HYDROCHLOROTHIAZIDE [Concomitant]
     Indication: HYPERTENSION
     Dosage: 37.5/25 MG
     Dates: start: 20000101
  2. FERROUS SULFATE TAB [Concomitant]
     Dosage: 325 MG, TID
     Route: 048
     Dates: start: 20020101, end: 20061125
  3. MOTRIN [Concomitant]
     Dosage: 800 MG, TID
     Route: 048
     Dates: start: 20040427
  4. YASMIN [Suspect]
     Indication: UTERINE LEIOMYOMA
  5. YASMIN [Suspect]
     Indication: MENSTRUATION IRREGULAR
     Dosage: UNK
     Dates: start: 20021001, end: 20040401
  6. CIPROFLOXACIN [Concomitant]
     Dosage: 500 MG, BID
     Dates: start: 20040427

REACTIONS (5)
  - GALLBLADDER INJURY [None]
  - INJURY [None]
  - PAIN [None]
  - CHOLELITHIASIS [None]
  - DEEP VEIN THROMBOSIS [None]
